FAERS Safety Report 8818725 (Version 1)
Quarter: 2012Q4

REPORT INFORMATION
  Report Type: Spontaneous
  Country: US (occurrence: None)
  Receive Date: 20121002
  Receipt Date: 20121002
  Transmission Date: 20130627
  Serious: Yes (Hospitalization)
  Sender: FDA-Public Use
  Company Number: 20120591

PATIENT
  Age: 35 Month
  Sex: Male

DRUGS (1)
  1. DEXAMETHASONE SODIUM PHOSPHATE [Suspect]
     Dosage: 3 day course and 7

REACTIONS (9)
  - Stridor [None]
  - Cough [None]
  - Pyrexia [None]
  - White blood cell count increased [None]
  - Depressed level of consciousness [None]
  - Bacterial infection [None]
  - Staphylococcal infection [None]
  - Abscess [None]
  - Disease recurrence [None]
